FAERS Safety Report 4290729-0 (Version None)
Quarter: 2004Q1

REPORT INFORMATION
  Report Type: 
  Country: None (occurrence: None)
  Receive Date: 20040206
  Receipt Date: 20040206
  Transmission Date: 20041129
  Serious: Yes (Other)
  Sender: FDA-Public Use
  Company Number: None

PATIENT
  Age: 35 Year
  Sex: Female

DRUGS (1)
  1. ACCUTANE [Suspect]
     Dosage: 40 MG TWICE DAILY ORAL
     Route: 048
     Dates: start: 20031001, end: 20040128

REACTIONS (2)
  - MATERNAL DRUGS AFFECTING FOETUS [None]
  - UNINTENDED PREGNANCY [None]
